FAERS Safety Report 7368516-6 (Version None)
Quarter: 2011Q1

REPORT INFORMATION
  Report Type: 
  Country: None (occurrence: None)
  Receive Date: 20110317
  Receipt Date: 20110317
  Transmission Date: 20110831
  Serious: Yes (Hospitalization)
  Sender: FDA-Public Use
  Company Number: None

PATIENT
  Age: 61 Year
  Sex: Male
  Weight: 113.2 kg

DRUGS (2)
  1. LOVENOX [Suspect]
  2. WARFARIN SODIUM [Suspect]

REACTIONS (5)
  - ATRIAL FIBRILLATION [None]
  - SYNCOPE [None]
  - SUBDURAL HAEMATOMA [None]
  - CHEST DISCOMFORT [None]
  - BRAIN MIDLINE SHIFT [None]
